FAERS Safety Report 4598637-2 (Version None)
Quarter: 2005Q1

REPORT INFORMATION
  Report Type: 
  Country: None (occurrence: None)
  Receive Date: 20050304
  Receipt Date: 20050203
  Transmission Date: 20050727
  Serious: Yes (Other)
  Sender: FDA-Public Use
  Company Number: US-ROCHE-397160

PATIENT
  Age: 76 Year
  Sex: Male
  Weight: 70 kg

DRUGS (2)
  1. PEG-INTERFERON ALFA 2A (RO 25-8310) [Suspect]
     Indication: HEPATITIS C VIRUS
     Dosage: STUDY DRUG LAST TAKEN ON 27 JAN 2005
     Route: 058
     Dates: start: 20041110, end: 20050202
  2. RIBAVIRIN [Suspect]
     Indication: HEPATITIS C VIRUS
     Dosage: 400 MG QAM 600 MG QPM DATE STUDY DRUG LAST TAKEN 27 JAN 2005
     Route: 048
     Dates: start: 20041110, end: 20050202

REACTIONS (7)
  - CONCUSSION [None]
  - CONVULSION [None]
  - ECCHYMOSIS [None]
  - HEADACHE [None]
  - INCONTINENCE [None]
  - SKIN LACERATION [None]
  - VISION BLURRED [None]
